FAERS Safety Report 8928442 (Version 1)
Quarter: 2012Q4

REPORT INFORMATION
  Report Type: 
  Country: US (occurrence: US)
  Receive Date: 20121128
  Receipt Date: 20121128
  Transmission Date: 20130627
  Serious: No
  Sender: FDA-Public Use
  Company Number: US-BAYER-2012-118463

PATIENT
  Age: 56 Year
  Sex: Female

DRUGS (3)
  1. AVELOX [Suspect]
  2. LIPITOR [Concomitant]
     Dosage: UNK UNK, QD
  3. DILANTIN [Concomitant]
     Dosage: 100 mg, QID

REACTIONS (1)
  - Hypersensitivity [None]
